FAERS Safety Report 8886857 (Version 1)
Quarter: 2012Q4

REPORT INFORMATION
  Report Type: 
  Country: ES (occurrence: ES)
  Receive Date: 20121105
  Receipt Date: 20121105
  Transmission Date: 20130627
  Serious: Yes (Hospitalization)
  Sender: FDA-Public Use
  Company Number: ES-ASTRAZENECA-2012SE82373

PATIENT
  Age: 53 Year
  Sex: Male

DRUGS (1)
  1. VIMOVO [Suspect]
     Indication: INTERVERTEBRAL DISC PROTRUSION
     Dosage: 500/20 MG, TWO TIMES A DAY
     Route: 048
     Dates: start: 20120803

REACTIONS (2)
  - Lacunar infarction [Recovered/Resolved]
  - Rash [Unknown]
